FAERS Safety Report 7482113-3 (Version None)
Quarter: 2011Q2

REPORT INFORMATION
  Report Type: 
  Country: None (occurrence: None)
  Receive Date: 20110516
  Receipt Date: 20110506
  Transmission Date: 20111010
  Serious: Yes (Hospitalization, Other)
  Sender: FDA-Public Use
  Company Number: US-ASTRAZENECA-2009UW19680

PATIENT
  Age: 60 Year
  Sex: Female

DRUGS (3)
  1. CRESTOR [Suspect]
     Route: 048
  2. CRESTOR [Suspect]
     Route: 048
  3. NEXIUM [Concomitant]
     Route: 048

REACTIONS (11)
  - LIVER SCAN ABNORMAL [None]
  - METASTASES TO CENTRAL NERVOUS SYSTEM [None]
  - BILE DUCT STENT INSERTION [None]
  - MASTECTOMY [None]
  - VOMITING [None]
  - HYSTERECTOMY [None]
  - RADIOTHERAPY [None]
  - BRAIN TUMOUR OPERATION [None]
  - HYPOAESTHESIA [None]
  - CONVULSION [None]
  - HYPERCHOLESTEROLAEMIA [None]
